FAERS Safety Report 6448294-5 (Version None)
Quarter: 2009Q4

REPORT INFORMATION
  Report Type: 
  Country: None (occurrence: None)
  Receive Date: 20091120
  Receipt Date: 20091112
  Transmission Date: 20100525
  Serious: Yes (Other)
  Sender: FDA-Public Use
  Company Number: PHEH2009US15980

PATIENT
  Age: 57 Year
  Sex: Male

DRUGS (4)
  1. ZOMETA [Suspect]
     Indication: PROSTATE CANCER METASTATIC
     Dosage: 4 MG, Q3 WEEKS
     Route: 042
     Dates: start: 20061010, end: 20080606
  2. DOCETAXEL [Concomitant]
     Dosage: UNK, UNK
     Dates: start: 20061010
  3. PREDNISONE [Concomitant]
     Dosage: 10 MG, QD
  4. CORTICOSTEROIDS [Concomitant]
     Dosage: UNK, UNK

REACTIONS (1)
  - OSTEONECROSIS [None]
